FAERS Safety Report 7673545-9 (Version None)
Quarter: 2011Q3

REPORT INFORMATION
  Report Type: 
  Country: None (occurrence: None)
  Receive Date: 20110804
  Receipt Date: 20110722
  Transmission Date: 20111222
  Serious: Yes (Other)
  Sender: FDA-Public Use
  Company Number: IT-1187260

PATIENT
  Age: 42 Year
  Sex: Male

DRUGS (1)
  1. VIGAMOX [Suspect]
     Dosage: (OPHTHALMIC)
     Route: 047

REACTIONS (1)
  - DRUG HYPERSENSITIVITY [None]
